FAERS Safety Report 17484599 (Version 1)
Quarter: 2020Q1

REPORT INFORMATION
  Report Type: Spontaneous
  Country: US (occurrence: US)
  Receive Date: 20200302
  Receipt Date: 20200302
  Transmission Date: 20200409
  Serious: Yes (Other)
  Sender: FDA-Public Use
  Company Number: US-SUNOVION-2020SUN000649

PATIENT
  Age: 62 Year
  Sex: Male

DRUGS (1)
  1. LONHALA MAGNAIR [Suspect]
     Active Substance: GLYCOPYRROLATE
     Dosage: 25 ?G UNK
     Route: 055

REACTIONS (5)
  - Therapy cessation [Unknown]
  - Wrong technique in product usage process [Unknown]
  - Cardiac dysfunction [Unknown]
  - Condition aggravated [Unknown]
  - Lung disorder [Unknown]
